FAERS Safety Report 6401849-6 (Version None)
Quarter: 2009Q4

REPORT INFORMATION
  Report Type: 
  Country: None (occurrence: None)
  Receive Date: 20091015
  Receipt Date: 20091005
  Transmission Date: 20100525
  Serious: No
  Sender: FDA-Public Use
  Company Number: US-ELI_LILLY_AND_COMPANY-US200910001746

PATIENT
  Age: 30 Year
  Sex: Female

DRUGS (7)
  1. CYMBALTA [Suspect]
     Dosage: 60 MG, UNK
     Dates: start: 20060101, end: 20090701
  2. NORCO [Concomitant]
  3. METFORMIN HYDROCHLORIDE [Concomitant]
  4. ALLEGRA [Concomitant]
  5. ZANTAC [Concomitant]
  6. ZANAFLEX [Concomitant]
  7. ACIPHEX [Concomitant]

REACTIONS (1)
  - BLOOD ALKALINE PHOSPHATASE INCREASED [None]
